FAERS Safety Report 4379352-7 (Version None)
Quarter: 2004Q2

REPORT INFORMATION
  Report Type: 
  Country: None (occurrence: None)
  Receive Date: 20040615
  Receipt Date: 20040531
  Transmission Date: 20050107
  Serious: Yes (Hospitalization)
  Sender: FDA-Public Use
  Company Number: UKO04000101

PATIENT
  Sex: Male

DRUGS (3)
  1. VICKS VAPORUB, POMATO BALSAMICA (CAMPHOR 149.5 MG, MENTHOL 76.70 MG, T [Suspect]
     Dosage: 1 APPLICATION, ONCE ONLY
     Route: 061
     Dates: start: 20040526, end: 20040526
  2. INTRAFER  (FERROUS AMINOPROPANE DICARBOXYLATE) [Concomitant]
  3. CALCIUM FOLINATE   (CALCIUM FOLINATE) [Concomitant]

REACTIONS (2)
  - BRONCHOSPASM [None]
  - DYSPNOEA [None]
